FAERS Safety Report 9801719 (Version 2)
Quarter: 2014Q3

REPORT INFORMATION
  Report Type: Spontaneous
  Country: US (occurrence: US)
  Receive Date: 20140107
  Receipt Date: 20140808
  Transmission Date: 20150326
  Serious: Yes (Hospitalization, Other)
  Sender: FDA-Public Use
  Company Number: US-009507513-1401USA001938

PATIENT
  Sex: Female
  Weight: 146.3 kg

DRUGS (1)
  1. NUVARING [Suspect]
     Active Substance: ETHINYL ESTRADIOL\ETONOGESTREL
     Indication: PRODUCT USED FOR UNKNOWN INDICATION
     Route: 067

REACTIONS (32)
  - Cholecystectomy [Unknown]
  - Intestinal infarction [Unknown]
  - Metabolic acidosis [Unknown]
  - Injury [Unknown]
  - Atelectasis [Unknown]
  - Anastomotic leak [Unknown]
  - Ascites [Unknown]
  - Hypertension [Unknown]
  - Sinus tachycardia [Unknown]
  - Ileus [Recovered/Resolved]
  - Bacteraemia [Unknown]
  - Abscess drainage [Unknown]
  - Deep vein thrombosis [Unknown]
  - Respiratory failure [Unknown]
  - Mesenteric vein thrombosis [Unknown]
  - Pleural effusion [Unknown]
  - Abdominal wall abscess [Unknown]
  - Small intestinal resection [Unknown]
  - Surgery [Unknown]
  - Malnutrition [Unknown]
  - Hepatic steatosis [Unknown]
  - Splenic abscess [Unknown]
  - Peritonitis [Unknown]
  - Limb operation [Unknown]
  - Deep vein thrombosis [Unknown]
  - Renal failure acute [Unknown]
  - Small intestinal resection [Unknown]
  - Gastrointestinal oedema [Unknown]
  - Pneumoperitoneum [Unknown]
  - Small intestinal perforation [Unknown]
  - Intestinal fistula [Unknown]
  - Hysterectomy [Unknown]

NARRATIVE: CASE EVENT DATE: 200702
